FAERS Safety Report 6933613-3 (Version None)
Quarter: 2010Q3

REPORT INFORMATION
  Report Type: 
  Country: None (occurrence: None)
  Receive Date: 20100820
  Receipt Date: 20100818
  Transmission Date: 20110219
  Serious: Yes (Death, Life-Threatening)
  Sender: FDA-Public Use
  Company Number: JP-ROXANE LABORATORIES, INC.-2010-RO-01107RO

PATIENT
  Age: 62 Year
  Sex: Male
  Weight: 60 kg

DRUGS (9)
  1. METHOTREXATE [Suspect]
     Indication: RHEUMATOID ARTHRITIS
  2. PARAMETHASONE ACETATE [Suspect]
     Indication: RHEUMATOID ARTHRITIS
     Dosage: 1 MG
  3. BUCILLAMINE [Suspect]
     Indication: RHEUMATOID ARTHRITIS
     Dosage: 300 MG
  4. METHYLPREDNISOLONE [Suspect]
     Indication: ACUTE INTERSTITIAL PNEUMONITIS
     Dosage: 1 G
  5. METHYLPREDNISOLONE [Suspect]
     Dosage: 120 MG
  6. CIPROFLOXACIN [Suspect]
     Indication: ACUTE INTERSTITIAL PNEUMONITIS
     Dosage: 600 MG
  7. CIPROFLOXACIN [Suspect]
     Indication: DISSEMINATED TUBERCULOSIS
  8. ISONIAZID [Suspect]
     Indication: DISSEMINATED TUBERCULOSIS
     Dosage: 300 MG
     Route: 042
  9. STREPTOMYCIN HYDROCHLORIDE [Suspect]
     Indication: DISSEMINATED TUBERCULOSIS
     Dosage: 1 G
     Route: 030

REACTIONS (5)
  - ACUTE RESPIRATORY DISTRESS SYNDROME [None]
  - DISSEMINATED INTRAVASCULAR COAGULATION [None]
  - DISSEMINATED TUBERCULOSIS [None]
  - MULTI-ORGAN FAILURE [None]
  - RESPIRATORY FAILURE [None]
